FAERS Safety Report 7584097-6 (Version None)
Quarter: 2011Q2

REPORT INFORMATION
  Report Type: 
  Country: None (occurrence: None)
  Receive Date: 20110630
  Receipt Date: 20110621
  Transmission Date: 20111010
  Serious: Yes (Other)
  Sender: FDA-Public Use
  Company Number: US-JNJFOC-20110610270

PATIENT
  Sex: Female
  Weight: 56.7 kg

DRUGS (6)
  1. REMICADE [Suspect]
     Indication: ANKYLOSING SPONDYLITIS
     Dosage: 5-7 MG/KG Q8W
     Route: 042
     Dates: start: 20090301, end: 20101001
  2. METHOTREXATE [Concomitant]
     Route: 048
  3. METHOTREXATE [Concomitant]
     Indication: ANKYLOSING SPONDYLITIS
     Route: 048
  4. PROZAC [Concomitant]
     Indication: ANXIETY
     Route: 048
  5. REMICADE [Suspect]
     Indication: CROHN'S DISEASE
     Dosage: 5-7 MG/KG Q8W
     Route: 042
     Dates: start: 20090301, end: 20101001
  6. SPIRONOLACTONE [Concomitant]
     Indication: ACNE

REACTIONS (6)
  - PAIN [None]
  - ABASIA [None]
  - MUSCLE SPASMS [None]
  - LUPUS-LIKE SYNDROME [None]
  - IMPAIRED SELF-CARE [None]
  - ARTHRALGIA [None]
